FAERS Safety Report 7000696-4 (Version None)
Quarter: 2010Q3

REPORT INFORMATION
  Report Type: 
  Country: None (occurrence: None)
  Receive Date: 20100920
  Receipt Date: 20080312
  Transmission Date: 20110219
  Serious: Yes (Hospitalization, Other)
  Sender: FDA-Public Use
  Company Number: US-ASTRAZENECA-2007UW18702

PATIENT
  Age: 6312 Day
  Sex: Male
  Weight: 145.1 kg

DRUGS (7)
  1. SEROQUEL [Suspect]
     Indication: BIPOLAR DISORDER
     Dosage: 50-900 MG
     Route: 048
     Dates: start: 20020228
  2. SEROQUEL [Suspect]
     Dosage: 100 MG - 125 MG
     Route: 048
     Dates: start: 20051110
  3. ZYPREXA [Concomitant]
     Indication: BIPOLAR DISORDER
     Dosage: 5 MG - 40 MG
     Route: 048
     Dates: start: 20011206
  4. ABILIFY [Concomitant]
     Route: 048
     Dates: start: 20041001, end: 20050901
  5. GEODON [Concomitant]
     Route: 048
  6. CONCERTA [Concomitant]
     Dosage: 18-36 MG, EVERY MORNING
     Dates: start: 20020116
  7. KLONOPIN [Concomitant]
     Indication: ANXIETY
     Dosage: 2-5 MG, DAILY
     Dates: start: 20020116

REACTIONS (5)
  - DIABETES MELLITUS [None]
  - DIABETIC KETOACIDOSIS [None]
  - HYPERGLYCAEMIA [None]
  - TYPE 1 DIABETES MELLITUS [None]
  - TYPE 2 DIABETES MELLITUS [None]
